FAERS Safety Report 5977750-9 (Version None)
Quarter: 2008Q4

REPORT INFORMATION
  Report Type: 
  Country: None (occurrence: None)
  Receive Date: 20081203
  Receipt Date: 20081124
  Transmission Date: 20090506
  Serious: Yes (Hospitalization)
  Sender: FDA-Public Use
  Company Number: FR-ASTRAZENECA-2008CG01737

PATIENT
  Age: 22098 Day
  Sex: Female

DRUGS (9)
  1. CRESTOR [Suspect]
     Route: 048
     Dates: end: 20081023
  2. CYTARABINE [Suspect]
     Route: 042
     Dates: start: 20080914, end: 20080914
  3. CISPLATIN [Suspect]
     Route: 042
     Dates: start: 20080910, end: 20080913
  4. ETOPOSIDE [Concomitant]
     Dates: start: 20080910, end: 20080913
  5. METHYLPREDNISOLONE 16MG TAB [Concomitant]
     Dates: start: 20080910, end: 20080914
  6. NEUPOGEN [Concomitant]
     Dates: start: 20080915, end: 20080925
  7. BACTRIM [Concomitant]
  8. ZELITREX [Concomitant]
  9. NEORECORMON [Concomitant]

REACTIONS (1)
  - INTERSTITIAL LUNG DISEASE [None]
